FAERS Safety Report 4695674-4 (Version None)
Quarter: 2005Q2

REPORT INFORMATION
  Report Type: 
  Country: None (occurrence: None)
  Receive Date: 20050617
  Receipt Date: 20050617
  Transmission Date: 20051028
  Serious: Yes (Hospitalization)
  Sender: FDA-Public Use
  Company Number: None

PATIENT
  Age: 8 Year
  Sex: Male
  Weight: 35 kg

DRUGS (9)
  1. IOBENGUANE SULFATE I 131 [Suspect]
     Indication: NEUROBLASTOMA
     Dosage: 12 MCI/KG/IV
     Route: 042
     Dates: start: 20050311
  2. CARBOPLANTIN [Suspect]
     Indication: NEUROBLASTOMA
     Dosage: 430 MG/ IV
     Route: 042
     Dates: start: 20050325, end: 20050328
  3. ETOPOSIDE [Suspect]
     Indication: NEUROBLASTOMA
     Dosage: 345 MG,  IV
     Route: 042
     Dates: start: 20050325, end: 20050328
  4. MELPHALAN [Suspect]
     Indication: NEUROBLASTOMA
     Dosage: 80 MG,  IV
     Route: 042
     Dates: start: 20050325, end: 20050327
  5. ACYCLOVIR [Concomitant]
  6. FLUCONAZOLE [Concomitant]
  7. PENTAMIDINE [Concomitant]
  8. PANTOPRAZOLE [Concomitant]
  9. CLOTRIMAZOLE TROCHES [Concomitant]

REACTIONS (3)
  - CATHETER RELATED INFECTION [None]
  - PYREXIA [None]
  - STAPHYLOCOCCAL INFECTION [None]
